FAERS Safety Report 15640790 (Version 4)
Quarter: 2020Q3

REPORT INFORMATION
  Report Type: Report from Study
  Country: JP (occurrence: JP)
  Receive Date: 20181120
  Receipt Date: 20200902
  Transmission Date: 20201102
  Serious: Yes (Other)
  Sender: FDA-Public Use
  Company Number: JP-INCYTE CORPORATION-2018IN011630

PATIENT

DRUGS (5)
  1. JAKAVI [Suspect]
     Active Substance: RUXOLITINIB
     Indication: POLYCYTHAEMIA VERA
     Dosage: 5 MG, QD
     Route: 048
     Dates: start: 20160914, end: 20170207
  2. JAKAVI [Suspect]
     Active Substance: RUXOLITINIB
     Dosage: 5 MG, BID
     Route: 048
     Dates: start: 20190206, end: 20190501
  3. JAKAVI [Suspect]
     Active Substance: RUXOLITINIB
     Dosage: 5 MG, BID
     Route: 048
     Dates: start: 20190515
  4. JAKAVI [Suspect]
     Active Substance: RUXOLITINIB
     Dosage: 5 MG, BID
     Route: 048
     Dates: start: 20170208, end: 20180710
  5. JAKAVI [Suspect]
     Active Substance: RUXOLITINIB
     Dosage: 5 MG, BID
     Route: 048
     Dates: start: 20181114, end: 20190109

REACTIONS (6)
  - Platelet count decreased [Recovering/Resolving]
  - Platelet count decreased [Recovered/Resolved]
  - Myelosuppression [Recovered/Resolved]
  - Post procedural haemorrhage [Recovered/Resolved]
  - Platelet count decreased [Recovered/Resolved]
  - Myelosuppression [Recovering/Resolving]

NARRATIVE: CASE EVENT DATE: 20180711
